FAERS Safety Report 21074913 (Version 1)
Quarter: 2022Q3

REPORT INFORMATION
  Report Type: Spontaneous
  Country: AU (occurrence: AU)
  Receive Date: 20220713
  Receipt Date: 20220713
  Transmission Date: 20221027
  Serious: Yes (Hospitalization, Disabling, Other)
  Sender: FDA-Public Use
  Company Number: AU-ELI_LILLY_AND_COMPANY-US202207000466

PATIENT
  Sex: Male
  Weight: 73.4 kg

DRUGS (17)
  1. OLANZAPINE [Suspect]
     Active Substance: OLANZAPINE
     Indication: Bipolar I disorder
     Dosage: 10 MG, UNKNOWN
     Route: 065
     Dates: start: 20080725
  2. OLANZAPINE [Suspect]
     Active Substance: OLANZAPINE
     Dosage: 7.5 MG, DAILY
     Route: 065
     Dates: start: 201911, end: 202202
  3. OLANZAPINE [Suspect]
     Active Substance: OLANZAPINE
     Dosage: UNK UNK, DAILY
     Route: 065
     Dates: start: 202002, end: 202006
  4. OLANZAPINE [Suspect]
     Active Substance: OLANZAPINE
     Dosage: UNK UNK, DAILY
     Route: 065
     Dates: start: 202006
  5. OLANZAPINE [Suspect]
     Active Substance: OLANZAPINE
     Dosage: 2.5 MG, EACH MORNING
     Route: 065
     Dates: end: 20211213
  6. OLANZAPINE [Suspect]
     Active Substance: OLANZAPINE
     Dosage: 5 MG, EACH EVENING
     Route: 065
     Dates: end: 20211213
  7. OLANZAPINE [Suspect]
     Active Substance: OLANZAPINE
     Dosage: 12.5 MG, UNKNOWN
     Route: 065
     Dates: start: 20211213
  8. VALPROATE [Suspect]
     Active Substance: VALPROIC ACID
     Indication: Bipolar I disorder
     Dosage: 2 MG, UNKNOWN
     Route: 065
     Dates: start: 20080725
  9. VALPROATE [Suspect]
     Active Substance: VALPROIC ACID
     Dosage: 700 MG, DAILY
     Route: 065
     Dates: start: 201911, end: 201912
  10. LITHIUM CARBONATE [Suspect]
     Active Substance: LITHIUM CARBONATE
     Indication: Bipolar I disorder
     Dosage: 250 MG, BID
     Route: 048
  11. COSMETICS [Concomitant]
     Active Substance: COSMETICS
     Indication: Product used for unknown indication
     Dosage: UNK, BID
     Route: 061
  12. DOCUSATE SODIUM\SENNOSIDE B [Concomitant]
     Active Substance: DOCUSATE SODIUM\SENNOSIDE B
     Indication: Product used for unknown indication
     Dosage: 2 DOSAGE FORM, BID
     Route: 048
  13. ENOXAPARIN [Concomitant]
     Active Substance: ENOXAPARIN
     Indication: Product used for unknown indication
     Dosage: 40 MG, EACH EVENING
     Route: 058
  14. POLYETHYLENE GLYCOLS [Concomitant]
     Active Substance: POLYETHYLENE GLYCOLS
     Indication: Product used for unknown indication
     Dosage: 1 DOSAGE FORM, BID
     Route: 048
  15. PANTOPRAZOLE [Concomitant]
     Active Substance: PANTOPRAZOLE
     Indication: Product used for unknown indication
     Dosage: 40 MG, DAILY
     Route: 048
  16. ACETAMINOPHEN [Concomitant]
     Active Substance: ACETAMINOPHEN
     Indication: Product used for unknown indication
     Dosage: 2 DOSAGE FORM, TID
     Route: 048
  17. THIAMINE [Concomitant]
     Active Substance: THIAMINE
     Indication: Product used for unknown indication
     Dosage: 3 DOSAGE FORM, EACH MORNING
     Route: 048

REACTIONS (15)
  - Psychotic disorder [Unknown]
  - Parkinsonism [Not Recovered/Not Resolved]
  - Skin cancer [Unknown]
  - Myocardial ischaemia [Unknown]
  - Large intestine polyp [Unknown]
  - Osteoarthritis [Unknown]
  - Cataract [Unknown]
  - Age-related macular degeneration [Unknown]
  - Hypertension [Unknown]
  - Nephrolithiasis [Unknown]
  - Gout [Unknown]
  - Pityriasis rubra pilaris [Unknown]
  - Skin ulcer [Unknown]
  - Gastrooesophageal reflux disease [Unknown]
  - Drug ineffective [Unknown]

NARRATIVE: CASE EVENT DATE: 20090101
